FAERS Safety Report 4283753-5 (Version None)
Quarter: 2004Q1

REPORT INFORMATION
  Report Type: 
  Country: None (occurrence: None)
  Receive Date: 20040130
  Receipt Date: 20040130
  Transmission Date: 20041129
  Serious: Yes (Hospitalization)
  Sender: FDA-Public Use
  Company Number: None

PATIENT
  Sex: Male
  Weight: 102.0593 kg

DRUGS (5)
  1. ENBREL [Suspect]
     Indication: RHEUMATOID ARTHRITIS
     Dosage: 25MG TWICE/WEEK SUBCUTANEOUS
     Route: 058
     Dates: start: 20030508, end: 20041228
  2. GLUCOSAMINE [Concomitant]
  3. CHONDROITIN SULFATE [Concomitant]
  4. POTASSIUM [Concomitant]
  5. NAPROXEN [Concomitant]

REACTIONS (4)
  - ASTHENIA [None]
  - FEELING HOT AND COLD [None]
  - PARAESTHESIA [None]
  - URINARY RETENTION [None]
